FAERS Safety Report 4832518-1 (Version None)
Quarter: 2005Q4

REPORT INFORMATION
  Report Type: 
  Country: None (occurrence: None)
  Receive Date: 20051117
  Receipt Date: 20051103
  Transmission Date: 20060501
  Serious: Yes (Death, Life-Threatening, Hospitalization)
  Sender: FDA-Public Use
  Company Number: 2005-02192

PATIENT
  Age: 53 Year
  Sex: Male
  Weight: 76.6 kg

DRUGS (5)
  1. VELCADE [Suspect]
     Indication: MULTIPLE MYELOMA
     Dosage: 1.30 MG/M2, 2/WEEK,
     Dates: start: 20030707, end: 20030714
  2. ANZEMET (DOLASETRON MESILATE) [Concomitant]
  3. DECADRON [Concomitant]
  4. PHYTONADIONE [Concomitant]
  5. ZOMETA [Concomitant]

REACTIONS (16)
  - ALANINE AMINOTRANSFERASE INCREASED [None]
  - ASPARTATE AMINOTRANSFERASE INCREASED [None]
  - BLOOD BILIRUBIN INCREASED [None]
  - CARDIAC TAMPONADE [None]
  - CARDIO-RESPIRATORY ARREST [None]
  - DEHYDRATION [None]
  - GASTROINTESTINAL HAEMORRHAGE [None]
  - HEADACHE [None]
  - HYPERCALCAEMIA [None]
  - HYPERCOAGULATION [None]
  - METASTASES TO LIVER [None]
  - PANCYTOPENIA [None]
  - PNEUMONIA [None]
  - PROTEIN TOTAL DECREASED [None]
  - PURPURA [None]
  - RENAL FAILURE [None]
